FAERS Safety Report 18729372 (Version 1)
Quarter: 2021Q1

REPORT INFORMATION
  Report Type: Spontaneous
  Country: US (occurrence: US)
  Receive Date: 20210111
  Receipt Date: 20210111
  Transmission Date: 20210419
  Serious: No
  Sender: FDA-Public Use
  Company Number: None

PATIENT
  Age: 65 Year
  Sex: Female
  Weight: 83.25 kg

DRUGS (2)
  1. HUMULIN R U?500 KWIKPEN [Suspect]
     Active Substance: INSULIN HUMAN
  2. OZEMPIC [Suspect]
     Active Substance: SEMAGLUTIDE
     Indication: TYPE 2 DIABETES MELLITUS
     Dates: start: 20210111

REACTIONS (3)
  - Intercepted product administration error [None]
  - Product packaging confusion [None]
  - Product storage error [None]

NARRATIVE: CASE EVENT DATE: 20210111
